FAERS Safety Report 8261864-7 (Version None)
Quarter: 2012Q2

REPORT INFORMATION
  Report Type: 
  Country: None (occurrence: None)
  Receive Date: 20120402
  Receipt Date: 20120326
  Transmission Date: 20120825
  Serious: Yes (Death, Hospitalization)
  Sender: FDA-Public Use
  Company Number: 2011SP059946

PATIENT
  Age: 48 Year
  Sex: Female

DRUGS (9)
  1. PEGASYS [Suspect]
     Indication: HEPATITIS C
     Dosage: 135 MCG, QW, SC
     Route: 058
     Dates: start: 20101001, end: 20111208
  2. ALLOPURINOL [Concomitant]
  3. MORPHINE SULFATE [Concomitant]
  4. ACETAMINOPHEN [Concomitant]
  5. COPEGUS [Suspect]
     Indication: HEPATITIS C
     Dosage: 1200 MG, QD, PO
     Route: 048
     Dates: start: 20101001, end: 20111208
  6. NEORECORMON [Concomitant]
  7. VICTRELIS (SCH-503034) [Suspect]
     Indication: HEPATITIS C
     Dosage: 800 MG, TID, PO
     Route: 048
     Dates: start: 20110920, end: 20111208
  8. FERROUS SULFATE TAB [Concomitant]
  9. AMOXICILLIN AND CLAVULANATE POTASSIUM [Concomitant]

REACTIONS (14)
  - PETECHIAE [None]
  - ECCHYMOSIS [None]
  - RESPIRATORY DISTRESS [None]
  - BRAIN DEATH [None]
  - CEREBRAL HAEMATOMA [None]
  - CEREBROVASCULAR ACCIDENT [None]
  - BONE MARROW TOXICITY [None]
  - COMA SCALE ABNORMAL [None]
  - SUBARACHNOID HAEMORRHAGE [None]
  - PURPURA [None]
  - BONE MARROW MYELOGRAM ABNORMAL [None]
  - MYDRIASIS [None]
  - THROMBOCYTOPENIA [None]
  - EPISTAXIS [None]
